FAERS Safety Report 9527627 (Version 1)
Quarter: 2013Q1

REPORT INFORMATION
  Report Type: Spontaneous
  Country: US (occurrence: None)
  Receive Date: 20130313
  Receipt Date: 20130313
  Transmission Date: 20140127
  Serious: Yes (Other)
  Sender: FDA-Public Use
  Company Number: 1000039597

PATIENT
  Age: 55 Year
  Sex: Male

DRUGS (1)
  1. SAVELLA [Suspect]
     Indication: FIBROMYALGIA
     Dosage: 12.5 MG, 1 IN 1 D
     Route: 048
     Dates: start: 201207, end: 2012

REACTIONS (1)
  - Heart rate increased [None]
